FAERS Safety Report 10407648 (Version 1)
Quarter: 2014Q3

REPORT INFORMATION
  Report Type: Report from Study
  Country: BR (occurrence: BR)
  Receive Date: 20140825
  Receipt Date: 20140825
  Transmission Date: 20150326
  Serious: Yes (Other)
  Sender: FDA-Public Use
  Company Number: PHHY2014BR105895

PATIENT
  Age: 84 Year
  Sex: Female

DRUGS (8)
  1. ALOIS [Concomitant]
     Active Substance: MEMANTINE
     Dosage: 2 DF, DAILY
     Route: 048
  2. OMEPRAZOLE. [Concomitant]
     Active Substance: OMEPRAZOLE
     Dosage: 1 DF, DAILY
     Route: 048
  3. ANGIPRESS [Concomitant]
     Active Substance: ATENOLOL
     Dosage: UNK UKN, UNK
  4. ATENOLOL. [Concomitant]
     Active Substance: ATENOLOL
     Dosage: UNK UKN, UNK
  5. ASPIRINA PREVENT [Concomitant]
     Active Substance: ASPIRIN
     Dosage: 1 DF, DAILY
     Route: 048
  6. DIOVAN [Suspect]
     Active Substance: VALSARTAN
     Dosage: UNK UKN, UNK
  7. ATENSINA [Concomitant]
     Active Substance: CLONIDINE
     Dosage: 1 DF,DAILY
     Route: 048
  8. REMINYL [Concomitant]
     Active Substance: GALANTAMINE
     Dosage: 1 DF, DAILY
     Route: 048

REACTIONS (1)
  - Dementia Alzheimer^s type [Unknown]
